FAERS Safety Report 8266454-8 (Version None)
Quarter: 2012Q2

REPORT INFORMATION
  Report Type: 
  Country: None (occurrence: None)
  Receive Date: 20120406
  Receipt Date: 20120404
  Transmission Date: 20120825
  Serious: Yes (Hospitalization)
  Sender: FDA-Public Use
  Company Number: US-MERCK-1204USA00603

PATIENT
  Age: 74 Year
  Sex: Male
  Weight: 87 kg

DRUGS (10)
  1. XARELTO [Suspect]
     Indication: ATRIAL FIBRILLATION
     Route: 048
     Dates: start: 20111218, end: 20111228
  2. AMIKACIN [Suspect]
     Indication: PREMEDICATION
     Route: 042
  3. JANUVIA [Suspect]
     Indication: TYPE 2 DIABETES MELLITUS
     Route: 048
  4. JANUVIA [Suspect]
     Route: 048
  5. ALLOPURINOL [Concomitant]
     Route: 048
  6. CARDIZEM CD [Concomitant]
     Route: 048
  7. LASIX [Concomitant]
     Route: 048
  8. AMARYL [Suspect]
     Indication: TYPE 2 DIABETES MELLITUS
     Route: 048
  9. AMARYL [Suspect]
     Route: 048
  10. AVODART [Concomitant]
     Route: 048

REACTIONS (5)
  - HEPATIC ENZYME INCREASED [None]
  - HAEMATURIA [None]
  - HYPERKALAEMIA [None]
  - RENAL FAILURE [None]
  - HYPOGLYCAEMIA [None]
